FAERS Safety Report 6007878-9 (Version None)
Quarter: 2008Q4

REPORT INFORMATION
  Report Type: 
  Country: None (occurrence: None)
  Receive Date: 20081217
  Receipt Date: 20080708
  Transmission Date: 20090506
  Serious: No
  Sender: FDA-Public Use
  Company Number: US-ASTRAZENECA-2008UW13638

PATIENT
  Age: 69 Year
  Sex: Female

DRUGS (2)
  1. CRESTOR [Suspect]
     Route: 048
  2. LEVAQUIN [Suspect]
     Indication: EAR DISORDER

REACTIONS (3)
  - ARTHRALGIA [None]
  - EAR DISORDER [None]
  - JOINT SWELLING [None]
